FAERS Safety Report 5500054-5 (Version None)
Quarter: 2007Q4

REPORT INFORMATION
  Report Type: 
  Country: None (occurrence: None)
  Receive Date: 20071024
  Receipt Date: 20071017
  Transmission Date: 20080405
  Serious: Yes (Life-Threatening)
  Sender: FDA-Public Use
  Company Number: OMPQ-NO-0710S-1295

PATIENT
  Age: 80 Year

DRUGS (2)
  1. OMNIPAQUE 140 [Suspect]
     Indication: DEPRESSED LEVEL OF CONSCIOUSNESS
     Dosage: 100 ML, SINGLE DOSE, I.V.
     Route: 042
     Dates: start: 20071009, end: 20071009
  2. OMNIPAQUE 140 [Suspect]
     Indication: PYREXIA
     Dosage: 100 ML, SINGLE DOSE, I.V.
     Route: 042
     Dates: start: 20071009, end: 20071009

REACTIONS (1)
  - RESPIRATORY ARREST [None]
